FAERS Safety Report 8017759-7 (Version None)
Quarter: 2012Q1

REPORT INFORMATION
  Report Type: 
  Country: None (occurrence: None)
  Receive Date: 20120103
  Receipt Date: 20111228
  Transmission Date: 20120608
  Serious: No
  Sender: FDA-Public Use
  Company Number: US-PFIZER INC-2011244995

PATIENT
  Sex: Male

DRUGS (3)
  1. CHANTIX [Suspect]
     Dosage: UNK
     Route: 048
     Dates: start: 20110101, end: 20111003
  2. CHANTIX [Suspect]
     Indication: SMOKING CESSATION THERAPY
     Dosage: UNK
     Route: 048
     Dates: start: 20110726, end: 20110101
  3. LORTAB [Concomitant]
     Dosage: 5/500 AS NEEDED

REACTIONS (5)
  - MOOD SWINGS [None]
  - INSOMNIA [None]
  - AFFECTIVE DISORDER [None]
  - AGGRESSION [None]
  - ANGER [None]
